FAERS Safety Report 6357219-2 (Version None)
Quarter: 2009Q3

REPORT INFORMATION
  Report Type: 
  Country: None (occurrence: None)
  Receive Date: 20090911
  Receipt Date: 20090831
  Transmission Date: 20100115
  Serious: Yes (Hospitalization)
  Sender: FDA-Public Use
  Company Number: 20097343

PATIENT
  Sex: Female

DRUGS (1)
  1. LIORESAL [Suspect]
     Indication: MUSCLE SPASTICITY
     Dosage: 1299.2 MCG, DAILY, INTRATHECAL
     Route: 045

REACTIONS (7)
  - DEVICE ELECTRICAL FINDING [None]
  - DEVICE MALFUNCTION [None]
  - DRUG WITHDRAWAL SYNDROME [None]
  - MOBILITY DECREASED [None]
  - MUSCLE SPASTICITY [None]
  - PRODUCT QUALITY ISSUE [None]
  - SPEECH DISORDER [None]
